FAERS Safety Report 9786072 (Version 1)
Quarter: 2013Q4

REPORT INFORMATION
  Report Type: Spontaneous
  Country: IN (occurrence: IN)
  Receive Date: 20131227
  Receipt Date: 20131227
  Transmission Date: 20140711
  Serious: Yes (Hospitalization, Other)
  Sender: FDA-Public Use
  Company Number: IN-ABBVIE-13P-078-1183111-00

PATIENT
  Age: 17 Year
  Sex: Male

DRUGS (5)
  1. DEPAKOTE [Suspect]
     Indication: SCHIZOAFFECTIVE DISORDER
     Route: 048
     Dates: start: 20131216, end: 20131218
  2. DEPAKOTE [Suspect]
     Indication: MANIA
  3. RISPERIDONE [Concomitant]
     Indication: PRODUCT USED FOR UNKNOWN INDICATION
     Dates: start: 20131214, end: 20131218
  4. TRIHEXYPHENIDYL [Concomitant]
     Indication: PRODUCT USED FOR UNKNOWN INDICATION
     Dates: start: 20131214, end: 20131218
  5. CLONAZEPAM [Concomitant]
     Indication: PRODUCT USED FOR UNKNOWN INDICATION
     Dates: start: 20131214, end: 20131218

REACTIONS (4)
  - Irritability [Unknown]
  - Abnormal behaviour [Unknown]
  - Restlessness [Unknown]
  - Hyperammonaemia [Not Recovered/Not Resolved]
